FAERS Safety Report 25606065 (Version 1)
Quarter: 2025Q3

REPORT INFORMATION
  Report Type: Spontaneous
  Country: EU (occurrence: EU)
  Receive Date: 20250725
  Receipt Date: 20250725
  Transmission Date: 20251021
  Serious: Yes (Life-Threatening, Other)
  Sender: RANBAXY
  Company Number: EU-AFSSAPS-AVMA2025000211

PATIENT
  Age: 38 Year
  Sex: Male

DRUGS (4)
  1. SILDENAFIL [Suspect]
     Active Substance: SILDENAFIL
     Indication: Product used for unknown indication
     Route: 065
  2. OXYBATE [Suspect]
     Active Substance: OXYBATE
     Indication: Product used for unknown indication
     Route: 065
  3. COCAINE [Suspect]
     Active Substance: COCAINE
     Indication: Product used for unknown indication
     Route: 065
  4. MEPHEDRONE [Suspect]
     Active Substance: MEPHEDRONE
     Indication: Product used for unknown indication
     Route: 065

REACTIONS (3)
  - Coma [Recovered/Resolved]
  - Miosis [Recovered/Resolved]
  - Substance use disorder [Unknown]

NARRATIVE: CASE EVENT DATE: 20250109
